FAERS Safety Report 11179732 (Version 1)
Quarter: 2015Q2

REPORT INFORMATION
  Report Type: Spontaneous
  Country: ES (occurrence: ES)
  Receive Date: 20150611
  Receipt Date: 20150611
  Transmission Date: 20150821
  Serious: Yes (Other)
  Sender: FDA-Public Use
  Company Number: ES-MERCK-1506ESP004201

PATIENT
  Age: 63 Year
  Sex: Female
  Weight: 54 kg

DRUGS (3)
  1. SOVALDI [Suspect]
     Active Substance: SOFOSBUVIR
     Indication: HEPATITIS NON-A NON-B
     Dosage: 400 MG FILM COATED TABLETS, 28 TABLETS
     Route: 048
     Dates: start: 20150424, end: 20150523
  2. REBETOL [Suspect]
     Active Substance: RIBAVIRIN
     Indication: HEPATITIS NON-A NON-B
     Dosage: 200 MG HARD CAPSULES, 140 CAPSULES
     Route: 048
     Dates: start: 20150424, end: 20150523
  3. OLYSIO [Suspect]
     Active Substance: SIMEPREVIR
     Indication: HEPATITIS NON-A NON-B
     Dosage: 150 MG HARD CAPSULES, 28 HARD CAPSULES
     Route: 048
     Dates: start: 20150424, end: 20150523

REACTIONS (2)
  - Bipolar disorder [Recovering/Resolving]
  - Hepatic function abnormal [Recovering/Resolving]

NARRATIVE: CASE EVENT DATE: 20150518
